FAERS Safety Report 16762180 (Version 4)
Quarter: 2019Q3

REPORT INFORMATION
  Report Type: Report from Study
  Country: None (occurrence: CA)
  Receive Date: 20190831
  Receipt Date: 20190927
  Transmission Date: 20191005
  Serious: No
  Sender: FDA-Public Use
  Company Number: CA-ABBVIE-19K-028-2906329-00

PATIENT
  Sex: Male

DRUGS (1)
  1. DUODOPA [Suspect]
     Active Substance: CARBIDOPA\LEVODOPA
     Indication: PARKINSON^S DISEASE
     Route: 050
     Dates: start: 20171129

REACTIONS (4)
  - On and off phenomenon [Not Recovered/Not Resolved]
  - Stoma site erythema [Recovered/Resolved]
  - Device dislocation [Unknown]
  - Stoma site infection [Recovered/Resolved]
